FAERS Safety Report 17763249 (Version 1)
Quarter: 2020Q2

REPORT INFORMATION
  Report Type: Report from Study
  Country: None (occurrence: US)
  Receive Date: 20200508
  Receipt Date: 20200508
  Transmission Date: 20200714
  Serious: Yes (Other)
  Sender: FDA-Public Use
  Company Number: US-ABBVIE-20K-163-3395400-00

PATIENT
  Sex: Female

DRUGS (2)
  1. HUMIRA [Suspect]
     Active Substance: ADALIMUMAB
     Indication: CROHN^S DISEASE
     Route: 058
     Dates: start: 20191230
  2. MIRALAX [Concomitant]
     Active Substance: POLYETHYLENE GLYCOL 3350
     Indication: PRODUCT USED FOR UNKNOWN INDICATION

REACTIONS (11)
  - Hernia [Unknown]
  - Fear [Unknown]
  - Postoperative wound infection [Unknown]
  - Anxiety [Unknown]
  - Depressed mood [Unknown]
  - Mammoplasty [Unknown]
  - Insomnia [Unknown]
  - Abdominoplasty [Unknown]
  - Liposuction [Unknown]
  - Constipation [Unknown]
  - Eczema eyelids [Unknown]

NARRATIVE: CASE EVENT DATE: 2020
